FAERS Safety Report 5655949-9 (Version None)
Quarter: 2008Q1

REPORT INFORMATION
  Report Type: 
  Country: None (occurrence: None)
  Receive Date: 20080307
  Receipt Date: 20080229
  Transmission Date: 20080703
  Serious: Yes (Hospitalization)
  Sender: FDA-Public Use
  Company Number: TR-BOEHRINGER INGELHEIM GMBH, GERMANY-2008-DE-01297GD

PATIENT
  Age: 63 Year
  Sex: Male

DRUGS (6)
  1. RANITIDINE [Suspect]
  2. STEROID [Suspect]
     Indication: MULTIPLE MYELOMA
  3. ADRIAMYCIN PFS [Suspect]
     Indication: MULTIPLE MYELOMA
  4. ETOPOSIDE [Suspect]
     Indication: MULTIPLE MYELOMA
  5. VINCRISTINE [Suspect]
     Indication: MULTIPLE MYELOMA
  6. CYCLOFOSPHA [Suspect]
     Indication: MULTIPLE MYELOMA

REACTIONS (3)
  - FEBRILE NEUTROPENIA [None]
  - LISTERIOSIS [None]
  - SEPSIS [None]
